FAERS Safety Report 15747098 (Version 4)
Quarter: 2019Q3

REPORT INFORMATION
  Report Type: Report from Study
  Country: US (occurrence: US)
  Receive Date: 20181220
  Receipt Date: 20190712
  Transmission Date: 20191004
  Serious: Yes (Hospitalization)
  Sender: FDA-Public Use
  Company Number: US-ACTELION-A-US2018-170199

PATIENT
  Age: 27 Year
  Sex: Female

DRUGS (15)
  1. NORCO [Suspect]
     Active Substance: ACETAMINOPHEN\HYDROCODONE BITARTRATE
     Indication: PRODUCT USED FOR UNKNOWN INDICATION
     Route: 065
  2. BUSPIRONE [Concomitant]
     Active Substance: BUSPIRONE HYDROCHLORIDE
  3. SILDENAFIL. [Concomitant]
     Active Substance: SILDENAFIL
     Dosage: 40 MG, TID
     Dates: start: 20171115
  4. METOPROLOL. [Concomitant]
     Active Substance: METOPROLOL
     Dosage: 50 MG, QD
  5. AMOXICILLIN + CLAV. POTASSIUM [Concomitant]
     Active Substance: AMOXICILLIN\CLAVULANATE POTASSIUM
  6. DIGOXIN. [Concomitant]
     Active Substance: DIGOXIN
     Dosage: 125 MG, QD
  7. PREDNISONE. [Concomitant]
     Active Substance: PREDNISONE
  8. BELIMUMAB [Concomitant]
     Active Substance: BELIMUMAB
     Dosage: 200 MG/ML, Q1WEEK
  9. OPSUMIT [Suspect]
     Active Substance: MACITENTAN
     Indication: PULMONARY ARTERIAL HYPERTENSION
     Dosage: 10 MG, QD
     Route: 048
     Dates: start: 20180228, end: 201903
  10. TYLENOL [Suspect]
     Active Substance: ACETAMINOPHEN
     Indication: PRODUCT USED FOR UNKNOWN INDICATION
     Dosage: 500 MG
     Route: 065
  11. AZATHIOPRINE. [Suspect]
     Active Substance: AZATHIOPRINE
     Indication: PRODUCT USED FOR UNKNOWN INDICATION
     Route: 065
  12. BENLYSTA [Concomitant]
     Active Substance: BELIMUMAB
     Dosage: 200 MG, Q1WEEK
     Dates: start: 20180831
  13. HYDROXYCHLOROQUINE [Concomitant]
     Active Substance: HYDROXYCHLOROQUINE
     Dosage: 20 MG, BID
  14. SERTRALINE [Concomitant]
     Active Substance: SERTRALINE HYDROCHLORIDE
  15. PANTOPRAZOLE [Concomitant]
     Active Substance: PANTOPRAZOLE
     Dosage: 20 MG, QD

REACTIONS (26)
  - Chest discomfort [Unknown]
  - Cough [Unknown]
  - Musculoskeletal chest pain [Unknown]
  - Ocular icterus [Unknown]
  - Blood bilirubin increased [Unknown]
  - Headache [Unknown]
  - Alanine aminotransferase increased [Recovered/Resolved]
  - Blood alkaline phosphatase increased [Recovered/Resolved]
  - Vomiting [Unknown]
  - Skin lesion [Unknown]
  - Pain [Unknown]
  - Pain in extremity [Unknown]
  - Periorbital pain [Unknown]
  - Condition aggravated [Unknown]
  - Exposure during pregnancy [Unknown]
  - Nausea [Unknown]
  - Pruritus [Unknown]
  - Aspartate aminotransferase increased [Recovered/Resolved]
  - Malaise [Not Recovered/Not Resolved]
  - Candida infection [Recovering/Resolving]
  - Vaginal haemorrhage [Not Recovered/Not Resolved]
  - Haemoptysis [Unknown]
  - Hypersensitivity [Unknown]
  - Chest pain [Unknown]
  - Rash [Unknown]
  - Dyspnoea [Unknown]

NARRATIVE: CASE EVENT DATE: 201803
